FAERS Safety Report 5821504-0 (Version None)
Quarter: 2008Q3

REPORT INFORMATION
  Report Type: 
  Country: None (occurrence: None)
  Receive Date: 20080724
  Receipt Date: 20080722
  Transmission Date: 20090109
  Serious: Yes (Death, Hospitalization)
  Sender: FDA-Public Use
  Company Number: JP-EISAI MEDICAL RESEARCH-E2020-02971-SPO-JP

PATIENT
  Sex: Male

DRUGS (8)
  1. ARICEPT [Suspect]
     Indication: DEMENTIA ALZHEIMER'S TYPE
     Route: 048
     Dates: start: 20071214, end: 20071227
  2. ARICEPT [Suspect]
     Route: 048
     Dates: start: 20071228, end: 20080326
  3. ARICEPT [Suspect]
     Route: 048
     Dates: start: 20080612, end: 20080625
  4. DIOVAN [Concomitant]
     Indication: HYPERTENSION
     Route: 048
     Dates: start: 20051027, end: 20080627
  5. BUP-4 [Concomitant]
     Indication: NEUROGENIC BLADDER
     Route: 048
     Dates: start: 20080207, end: 20080625
  6. MUCOSTA [Concomitant]
     Indication: GASTRITIS
     Route: 048
  7. MAINTATE [Concomitant]
     Indication: ESSENTIAL HYPERTENSION
     Route: 048
     Dates: start: 20071125, end: 20080115
  8. ATELEC [Concomitant]
     Indication: ESSENTIAL HYPERTENSION
     Route: 048
     Dates: start: 20080116, end: 20080326

REACTIONS (1)
  - GRANULOCYTE COUNT DECREASED [None]
